FAERS Safety Report 6915266-3 (Version None)
Quarter: 2010Q3

REPORT INFORMATION
  Report Type: 
  Country: None (occurrence: None)
  Receive Date: 20100809
  Receipt Date: 20090923
  Transmission Date: 20110219
  Serious: No
  Sender: FDA-Public Use
  Company Number: US-ABBOTT-09P-163-0595024-00

PATIENT
  Sex: Male
  Weight: 86.26 kg

DRUGS (3)
  1. DEPAKOTE ER [Suspect]
     Indication: MOOD SWINGS
     Dates: start: 20040101, end: 20040101
  2. CLONIDINE HYDROCHLORIDE [Concomitant]
     Indication: MOOD SWINGS
  3. GEMFIBROZIL [Concomitant]
     Indication: BLOOD TRIGLYCERIDES INCREASED

REACTIONS (1)
  - WRONG TECHNIQUE IN DRUG USAGE PROCESS [None]
